FAERS Safety Report 9318632 (Version 1)
Quarter: 2013Q2

REPORT INFORMATION
  Report Type: Spontaneous
  Country: US (occurrence: US)
  Receive Date: 20130530
  Receipt Date: 20130530
  Transmission Date: 20140414
  Serious: Yes (Hospitalization, Other)
  Sender: FDA-Public Use
  Company Number: US-GILEAD-2013-0075355

PATIENT
  Sex: Female

DRUGS (5)
  1. LETAIRIS [Suspect]
     Indication: PULMONARY ARTERIAL HYPERTENSION
     Dosage: 10 MG, QD
     Dates: start: 20130310
  2. LETAIRIS [Suspect]
     Indication: COLLAGEN-VASCULAR DISEASE
  3. LETAIRIS [Suspect]
     Indication: SYSTEMIC LUPUS ERYTHEMATOSUS
  4. TYVASO [Suspect]
  5. ADCIRCA [Concomitant]

REACTIONS (3)
  - Pneumonia [Unknown]
  - Pneumonia [Unknown]
  - Cough [Unknown]
